FAERS Safety Report 8532966 (Version 5)
Quarter: 2014Q3

REPORT INFORMATION
  Report Type: Spontaneous
  Country: US (occurrence: US)
  Receive Date: 20120427
  Receipt Date: 20140903
  Transmission Date: 20150326
  Serious: No
  Sender: FDA-Public Use
  Company Number: US-PFIZER INC-2012099530

PATIENT
  Age: 63 Year
  Sex: Male

DRUGS (4)
  1. PRISTIQ EXTENDED RELEASE [Suspect]
     Active Substance: DESVENLAFAXINE SUCCINATE
     Dosage: 50 MG, 2X/DAY
  2. PRISTIQ EXTENDED RELEASE [Suspect]
     Active Substance: DESVENLAFAXINE SUCCINATE
     Dosage: 100 MG, 1X/DAY (50 MG II TAB Q AM)
  3. CELEBREX [Suspect]
     Active Substance: CELECOXIB
     Dosage: 1 CAP, 200 MG, 2X/DAY
  4. CYTOTEC [Suspect]
     Active Substance: MISOPROSTOL
     Dosage: UNK

REACTIONS (3)
  - Dysarthria [Unknown]
  - Asthma [Unknown]
  - Seasonal allergy [Unknown]
